FAERS Safety Report 7041046-7 (Version None)
Quarter: 2010Q4

REPORT INFORMATION
  Report Type: 
  Country: None (occurrence: None)
  Receive Date: 20101013
  Receipt Date: 20100930
  Transmission Date: 20110411
  Serious: Yes (Other)
  Sender: FDA-Public Use
  Company Number: IE-ELI_LILLY_AND_COMPANY-IE201010001720

PATIENT
  Age: 55 Year
  Sex: Male

DRUGS (1)
  1. CYMBALTA [Suspect]
     Indication: ANXIETY

REACTIONS (2)
  - AKATHISIA [None]
  - EPILEPSY [None]
